FAERS Safety Report 18014517 (Version 2)
Quarter: 2020Q3

REPORT INFORMATION
  Report Type: Spontaneous
  Country: US (occurrence: US)
  Receive Date: 20200713
  Receipt Date: 20200721
  Transmission Date: 20201103
  Serious: No
  Sender: FDA-Public Use
  Company Number: US-PFIZER INC-2019260190

PATIENT
  Age: 89 Year
  Sex: Female

DRUGS (1)
  1. PREMARIN [Suspect]
     Active Substance: ESTROGENS, CONJUGATED
     Dosage: 2 G, DAILY (ONE APPLICATOR PER UNIT DAILY, 45 GM CREAM)
     Route: 067

REACTIONS (4)
  - Product use issue [Unknown]
  - Urinary tract infection [Unknown]
  - Off label use [Unknown]
  - Product prescribing error [Unknown]
